FAERS Safety Report 25413643 (Version 7)
Quarter: 2025Q3

REPORT INFORMATION
  Report Type: Report from Study
  Country: US (occurrence: US)
  Receive Date: 20250609
  Receipt Date: 20250829
  Transmission Date: 20251020
  Serious: No
  Sender: ACADIA PHARMACEUTICALS
  Company Number: US-ACADIA PHARMACEUTICALS INC.-ACA-2025-TRF-006787

PATIENT
  Age: 19 Year
  Sex: Female
  Weight: 40.363 kg

DRUGS (4)
  1. DAYBUE [Suspect]
     Active Substance: TROFINETIDE
     Indication: Rett syndrome
     Dosage: 50 MILLILITER, BID
     Route: 048
     Dates: start: 20250308, end: 20250530
  2. DAYBUE [Suspect]
     Active Substance: TROFINETIDE
     Dosage: 25 MILLILITER, BID (IN MORNING AND EVENING)
     Route: 048
     Dates: start: 20250605
  3. DAYBUE [Suspect]
     Active Substance: TROFINETIDE
     Dosage: 50 MILLILITER, BID(2-3 TIMES A WEEK)
     Route: 048
  4. DAYBUE [Suspect]
     Active Substance: TROFINETIDE
     Dosage: 25 MILLILITER, BID
     Route: 048
     Dates: start: 20250610

REACTIONS (6)
  - Constipation [Not Recovered/Not Resolved]
  - Frequent bowel movements [Not Recovered/Not Resolved]
  - Weight decreased [Not Recovered/Not Resolved]
  - Diarrhoea [Recovered/Resolved]
  - Diarrhoea [Not Recovered/Not Resolved]
  - Underdose [Unknown]

NARRATIVE: CASE EVENT DATE: 20250530
